FAERS Safety Report 23366872 (Version 1)
Quarter: 2024Q1

REPORT INFORMATION
  Report Type: Spontaneous
  Country: SE (occurrence: None)
  Receive Date: 20240104
  Receipt Date: 20240104
  Transmission Date: 20240410
  Serious: Yes (Hospitalization, Other)
  Sender: FDA-Public Use
  Company Number: 2024A001632

PATIENT
  Weight: 1.2 kg

DRUGS (32)
  1. QUETIAPINE [Suspect]
     Active Substance: QUETIAPINE
     Dosage: 25 MILLIGRAM IN 1 DAY AT 24 WEEK 6 DAYS
     Route: 064
  2. QUETIAPINE [Suspect]
     Active Substance: QUETIAPINE
     Dosage: BID, 5 MG BID DURING THE FOLLOWING 2 WEEKS, FROM 28 WEEKS
     Route: 064
  3. QUETIAPINE [Suspect]
     Active Substance: QUETIAPINE
     Dosage: 7.5 MILLIGRAM IN 1 DAY
     Route: 064
  4. QUETIAPINE [Suspect]
     Active Substance: QUETIAPINE
     Dosage: 10 MILLIGRAM IN 1 DAY
     Route: 064
  5. OLANZAPINE [Suspect]
     Active Substance: OLANZAPINE
     Dosage: 5 MG BID, SUBSEQUENT GRADUAL INCREASE, DURING 25 WEEKS 5 DAYS
     Route: 064
  6. OLANZAPINE [Suspect]
     Active Substance: OLANZAPINE
     Dosage: BID, 5 MG BID DURING THE FOLLOWING 2 WEEKS, FROM 28 WEEKS
     Route: 064
  7. OLANZAPINE [Suspect]
     Active Substance: OLANZAPINE
     Dosage: 7.5 MILLIGRAM IN 1 DAY
     Route: 064
  8. OLANZAPINE [Suspect]
     Active Substance: OLANZAPINE
     Dosage: 10 MILLIGRAM IN 1 DAY
     Route: 064
  9. VENLAFAXINE [Suspect]
     Active Substance: VENLAFAXINE HYDROCHLORIDE
     Dosage: 187.5 MILLIGRAM IN 1 DAY AT 24 WEEK,
     Route: 064
  10. VENLAFAXINE [Suspect]
     Active Substance: VENLAFAXINE HYDROCHLORIDE
     Dosage: 225 MILLIGRAM IN 1 DAY
     Route: 064
  11. VENLAFAXINE [Suspect]
     Active Substance: VENLAFAXINE HYDROCHLORIDE
     Dosage: 225 MILLIGRAM IN 1 DAY AT 25 WEEKS 5 DAYS
     Route: 064
  12. VENLAFAXINE [Suspect]
     Active Substance: VENLAFAXINE HYDROCHLORIDE
     Dosage: 225 MILLIGRAM IN 1 DAY AT 28 WEEKS
     Route: 064
  13. VENLAFAXINE [Suspect]
     Active Substance: VENLAFAXINE HYDROCHLORIDE
     Dosage: 225 MILLIGRAM IN 1 DAY AT DISCHARGE
     Route: 064
  14. ONDANSETRON [Suspect]
     Active Substance: ONDANSETRON
     Dosage: 4 MILLIGRAM IN AT 24 WEKS 6DAYS, AS NEEDED
     Route: 064
  15. ONDANSETRON [Suspect]
     Active Substance: ONDANSETRON
     Dosage: 4 MILLIGRAM IN AT 28 WEKS, AS NEEDED
     Route: 064
  16. OXAZEPAM [Suspect]
     Active Substance: OXAZEPAM
     Dosage: 10 MILLIGRAM IN AT 24 WEEKS 6 DAYS, AS NEEDED
     Route: 064
  17. OXAZEPAM [Suspect]
     Active Substance: OXAZEPAM
     Dosage: 10 MILLIGRAM IN AT 25 WEEKS 5 DAYS, AS NEEDED
     Route: 064
  18. OXAZEPAM [Suspect]
     Active Substance: OXAZEPAM
     Dosage: 10 MILLIGRAM IN AT 28 WEEKS, AS NEEDED
     Route: 064
  19. OXAZEPAM [Suspect]
     Active Substance: OXAZEPAM
     Dosage: 10 MILLIGRAM IN AT DISCHARGE, AS NEEDED
     Route: 064
  20. PROMETHAZINE [Suspect]
     Active Substance: PROMETHAZINE HYDROCHLORIDE
     Dosage: 25 MILLIGRAM IN AT 24 WEEKS 6 DAYS, AS NEEDED
     Route: 064
  21. PROMETHAZINE [Suspect]
     Active Substance: PROMETHAZINE HYDROCHLORIDE
     Dosage: 25 MILLIGRAM IN AT 25 WEEKS 5 DAYS, AS NEEDED
     Route: 064
  22. PROMETHAZINE [Suspect]
     Active Substance: PROMETHAZINE HYDROCHLORIDE
     Dosage: 25 MILLIGRAM IN AT 28 WEEKS , AS NEEDED
     Route: 064
  23. PROMETHAZINE [Suspect]
     Active Substance: PROMETHAZINE HYDROCHLORIDE
     Dosage: 25 MILLIGRAM IN AT 28 DISCHARGE , AS NEEDED
     Route: 064
  24. ZOLPIDEM [Suspect]
     Active Substance: ZOLPIDEM TARTRATE
     Dosage: 10 MILLIGRAM IN NIGHTLY REGIMEN, AT 24 WEEKS 6 DAYS
     Route: 064
  25. ZOLPIDEM [Suspect]
     Active Substance: ZOLPIDEM TARTRATE
     Dosage: 10 MILLIGRAM IN): NIGHTLY REGIMEN, AT 25 WEEKS 5 DAYS
     Route: 064
  26. ZOLPIDEM [Suspect]
     Active Substance: ZOLPIDEM TARTRATE
     Dosage: 10 MILLIGRAM NIGHTLY REGIMEN, AT 28 WEEKS
     Route: 064
  27. ZOLPIDEM [Suspect]
     Active Substance: ZOLPIDEM TARTRATE
     Dosage: 10 MILLIGRAMNIGHTLY REGIMEN, AT DISCHARGE
     Route: 064
  28. LAMOTRIGINE [Suspect]
     Active Substance: LAMOTRIGINE
     Dosage: 25 MILLIGRAM IN 1 DAY AT 24 WEEK
     Route: 064
  29. LAMOTRIGINE [Suspect]
     Active Substance: LAMOTRIGINE
     Dosage: 50 MG TO 150 MG PER DAY, GRADUAL INCREASE OVER 2 WEEKS, AT 24 WEEKS 6 DAYS
     Route: 064
  30. LAMOTRIGINE [Suspect]
     Active Substance: LAMOTRIGINE
     Dosage: 150 MILLIGRAM IN 1 DAY AT 25 WEEKS 5 DAYS,GRADUAL INCREASE OVER 2 WEEKS
     Route: 064
  31. LAMOTRIGINE [Suspect]
     Active Substance: LAMOTRIGINE
     Dosage: 150 MILLIGRAM AT 28 WEEKS
     Route: 064
  32. LAMOTRIGINE [Suspect]
     Active Substance: LAMOTRIGINE
     Dosage: 150 MILLIGRAM AT AT DISCHARGE
     Route: 064

REACTIONS (2)
  - Foetal exposure during pregnancy [Recovered/Resolved]
  - Premature baby [Recovered/Resolved]
